FAERS Safety Report 24362998 (Version 1)
Quarter: 2024Q3

REPORT INFORMATION
  Report Type: Spontaneous
  Country: US (occurrence: None)
  Receive Date: 20240925
  Receipt Date: 20240925
  Transmission Date: 20241017
  Serious: No
  Sender: Public
  Company Number: None

PATIENT
  Age: 54 Year
  Sex: Female
  Weight: 68.4 kg

DRUGS (4)
  1. PAXLOVID [Suspect]
     Active Substance: NIRMATRELVIR\RITONAVIR
     Indication: COVID-19
     Dosage: OTHER QUANTITY : 2 TABLET(S);?FREQUENCY : TWICE A DAY;?
     Route: 048
     Dates: start: 20240922, end: 20240924
  2. TRAZODONE [Concomitant]
     Active Substance: TRAZODONE HYDROCHLORIDE
  3. SERTRALINE [Concomitant]
     Active Substance: SERTRALINE HYDROCHLORIDE
  4. FAMOTIDINE [Concomitant]

REACTIONS (9)
  - Taste disorder [None]
  - Headache [None]
  - Diarrhoea [None]
  - Abdominal pain upper [None]
  - Illness [None]
  - Muscular weakness [None]
  - Feeling abnormal [None]
  - Balance disorder [None]
  - Gait disturbance [None]

NARRATIVE: CASE EVENT DATE: 20240924
